FAERS Safety Report 8220322-6 (Version None)
Quarter: 2012Q1

REPORT INFORMATION
  Report Type: 
  Country: None (occurrence: None)
  Receive Date: 20120320
  Receipt Date: 20120313
  Transmission Date: 20120608
  Serious: Yes (Other)
  Sender: FDA-Public Use
  Company Number: US-SHIRE-ALL1-2012-01408

PATIENT
  Sex: Female
  Weight: 82.993 kg

DRUGS (5)
  1. ADDERALL 5 [Suspect]
     Indication: ATTENTION DEFICIT/HYPERACTIVITY DISORDER
     Dosage: 20 MG, 1X/DAY:QD
     Route: 048
     Dates: start: 20050101, end: 20110101
  2. ADDERALL 5 [Suspect]
     Dosage: 10 MG, UNKNOWN
     Route: 048
     Dates: start: 20110101
  3. SYNTHROID [Concomitant]
     Indication: THYROIDECTOMY
     Dosage: 0.75 ?G, 1X/DAY:QD
     Route: 048
     Dates: start: 19970101, end: 20110101
  4. ADDERALL XR 10 [Suspect]
     Indication: ATTENTION DEFICIT/HYPERACTIVITY DISORDER
     Dosage: 20 MG, 1X/DAY:QD
     Route: 048
     Dates: start: 20050101
  5. THYROID TAB [Concomitant]
     Indication: THYROIDECTOMY
     Dosage: 1.50 MG, 1X/DAY:QD
     Route: 048
     Dates: start: 20110101

REACTIONS (6)
  - DEPRESSION [None]
  - POSTPARTUM DEPRESSION [None]
  - MATERNAL EXPOSURE DURING PREGNANCY [None]
  - DRUG EFFECT INCREASED [None]
  - STRESS [None]
  - ANGER [None]
